FAERS Safety Report 11163553 (Version 1)
Quarter: 2015Q2

REPORT INFORMATION
  Report Type: Report from Study
  Country: CA (occurrence: CA)
  Receive Date: 20150604
  Receipt Date: 20150604
  Transmission Date: 20150821
  Serious: Yes (Other)
  Sender: FDA-Public Use
  Company Number: CA-BAYER-2015-277673

PATIENT

DRUGS (4)
  1. STIVARGA [Suspect]
     Active Substance: REGORAFENIB
     Indication: RECTAL CANCER
     Dosage: 80 MG (2 PILLS)
     Route: 048
  2. STIVARGA [Suspect]
     Active Substance: REGORAFENIB
     Indication: RECTAL CANCER
     Dosage: 120 MG (3 PILLS)
     Route: 048
  3. STIVARGA [Suspect]
     Active Substance: REGORAFENIB
     Indication: RECTAL CANCER
     Dosage: 120 MG (3 PILLS)
     Route: 048
  4. STIVARGA [Suspect]
     Active Substance: REGORAFENIB
     Indication: RECTAL CANCER
     Dosage: 160 MG (4 PILLS)
     Route: 048
     Dates: start: 201411

REACTIONS (5)
  - Mucosal inflammation [None]
  - Palmar-plantar erythrodysaesthesia syndrome [None]
  - Gait disturbance [None]
  - Fatigue [None]
  - Pain in extremity [None]
